FAERS Safety Report 5939140-4 (Version None)
Quarter: 2008Q4

REPORT INFORMATION
  Report Type: 
  Country: None (occurrence: None)
  Receive Date: 20081103
  Receipt Date: 20081030
  Transmission Date: 20090506
  Serious: Yes (Life-Threatening)
  Sender: FDA-Public Use
  Company Number: GB-ASTRAZENECA-2008GB02061

PATIENT
  Age: 54 Year
  Sex: Male

DRUGS (6)
  1. SEROQUEL XR [Suspect]
     Indication: BIPOLAR DISORDER
     Dosage: PREVIOUSLY ON SEROQUEL BEFORE SWITCHING TO XL FORMULATION
     Route: 048
  2. SEROQUEL XR [Suspect]
     Dosage: 300 MG
     Route: 048
     Dates: start: 20081014, end: 20081014
  3. SEROQUEL XR [Suspect]
     Dosage: 600 MG
     Route: 048
     Dates: start: 20081015, end: 20081015
  4. SEROQUEL XR [Suspect]
     Dosage: AFTER EVENT PUT BACK ON SEROQUEL (IR) TITRATED FROM 25 MG TO 500 MG
     Route: 048
  5. SEROQUEL XR [Suspect]
     Dosage: 500 MG
     Route: 048
  6. ZOPICLONE [Concomitant]
     Indication: INSOMNIA

REACTIONS (5)
  - CHEST PAIN [None]
  - COMA [None]
  - CONFUSIONAL STATE [None]
  - HYPERHIDROSIS [None]
  - HYPOTENSION [None]
